FAERS Safety Report 5190045-9 (Version None)
Quarter: 2006Q4

REPORT INFORMATION
  Report Type: 
  Country: None (occurrence: None)
  Receive Date: 20061215
  Receipt Date: 20061205
  Transmission Date: 20070319
  Serious: Yes (Life-Threatening, Hospitalization)
  Sender: FDA-Public Use
  Company Number: T200601418

PATIENT
  Age: 69 Year
  Sex: Female

DRUGS (5)
  1. OPTIRAY 300 [Suspect]
     Indication: COMPUTERISED TOMOGRAM HEAD
     Dosage: 30 ML, SINGLE, INTRAVENOUS
     Route: 042
     Dates: start: 20061124, end: 20061124
  2. INSULIN [Concomitant]
  3. ANOPYRIN (ACETYLSALICYLIC ACID) [Concomitant]
  4. SIMVASTATIN [Concomitant]
  5. VASOCARDIN (METOPROLOL TARTRATE) [Concomitant]

REACTIONS (3)
  - DYSPNOEA [None]
  - LOSS OF CONSCIOUSNESS [None]
  - RESUSCITATION [None]
